FAERS Safety Report 22278825 (Version 1)
Quarter: 2023Q2

REPORT INFORMATION
  Report Type: Spontaneous
  Country: US (occurrence: None)
  Receive Date: 20230502
  Receipt Date: 20230502
  Transmission Date: 20230721
  Serious: Yes (Death)
  Sender: FDA-Public Use
  Company Number: None

PATIENT
  Age: 71 Year
  Sex: Male
  Weight: 99.61 kg

DRUGS (21)
  1. LENALIDOMIDE [Suspect]
     Active Substance: LENALIDOMIDE
     Indication: Chronic lymphocytic leukaemia
     Dosage: FREQUENCY : DAILY;?
     Route: 048
     Dates: end: 20230411
  2. ALFUZOSIN [Concomitant]
  3. ALLOPURINOL [Concomitant]
  4. ALPHA-LIPOIC [Concomitant]
  5. CLINDAMYCIN [Concomitant]
  6. COENZYME Q10 [Concomitant]
     Active Substance: DIETARY SUPPLEMENT\UBIDECARENONE
  7. FOLIC ACID [Concomitant]
     Active Substance: FOLIC ACID
  8. GABAPENTIN [Concomitant]
  9. GINGER [Concomitant]
     Active Substance: GINGER
  10. HYDROCODONE-GUAIFENESIN [Concomitant]
  11. NALOXONE [Concomitant]
     Active Substance: NALOXONE
  12. OMEPRAZOLE [Concomitant]
  13. OXYCODONE [Concomitant]
  14. PFIZER-BIONTECH COVID 19 VACCINE [Concomitant]
  15. POTASSIUM CITRATE [Concomitant]
     Active Substance: POTASSIUM CITRATE
  16. PRAVASTATIN [Concomitant]
  17. PROCHLORPERAZINE [Concomitant]
  18. VITAMIN B1 [Concomitant]
     Active Substance: THIAMINE HYDROCHLORIDE
  19. HERBALS\TURMERIC [Concomitant]
     Active Substance: HERBALS\TURMERIC
  20. VITAMIN B12 [Concomitant]
     Active Substance: CYANOCOBALAMIN
  21. VITAMIN B6 [Concomitant]
     Active Substance: PYRIDOXINE HYDROCHLORIDE

REACTIONS (1)
  - Death [None]

NARRATIVE: CASE EVENT DATE: 20230411
